FAERS Safety Report 8606059 (Version 4)
Quarter: 2013Q2

REPORT INFORMATION
  Report Type: Spontaneous
  Country: US (occurrence: US)
  Receive Date: 20120608
  Receipt Date: 20130404
  Transmission Date: 20140414
  Serious: Yes (Other)
  Sender: FDA-Public Use
  Company Number: US-ASTRAZENECA-2011SE49552

PATIENT
  Age: 48 Year
  Sex: Female

DRUGS (2)
  1. ATACAND [Suspect]
     Indication: HYPERTENSION
     Route: 048
  2. ATACAND [Suspect]
     Indication: CARDIAC DISORDER
     Route: 048

REACTIONS (5)
  - Thrombosis [Unknown]
  - Transient ischaemic attack [Unknown]
  - Rosacea [Unknown]
  - Medical device complication [Unknown]
  - Drug dose omission [Unknown]
